FAERS Safety Report 10690736 (Version 1)
Quarter: 2015Q1

REPORT INFORMATION
  Report Type: Spontaneous
  Country: HR (occurrence: HR)
  Receive Date: 20150105
  Receipt Date: 20150105
  Transmission Date: 20150720
  Serious: Yes (Hospitalization)
  Sender: FDA-Public Use
  Company Number: HR-TEVA-531379ISR

PATIENT
  Age: 37 Year
  Sex: Male

DRUGS (4)
  1. DEKSAMETAZON SANDOZ 4 MG/ML [Concomitant]
     Indication: PREMEDICATION
     Dosage: AMPULA
     Route: 042
  2. FLUOROURACIL PLIVA 500 MG/10 ML [Suspect]
     Active Substance: FLUOROURACIL
     Indication: RECTAL CANCER
     Dosage: LIQUID
     Route: 042
     Dates: start: 20141103, end: 20141106
  3. CALCIUM FOLINATE [Suspect]
     Active Substance: LEUCOVORIN CALCIUM
     Indication: RECTAL CANCER
     Dosage: VIALS
     Route: 042
     Dates: start: 20141103, end: 20141106
  4. REGLAN [Concomitant]
     Active Substance: METOCLOPRAMIDE HYDROCHLORIDE
     Indication: PREMEDICATION
     Route: 042

REACTIONS (1)
  - Febrile neutropenia [Recovered/Resolved]

NARRATIVE: CASE EVENT DATE: 20141120
